FAERS Safety Report 7030954-9 (Version None)
Quarter: 2010Q4

REPORT INFORMATION
  Report Type: 
  Country: None (occurrence: None)
  Receive Date: 20101006
  Receipt Date: 20090903
  Transmission Date: 20110411
  Serious: Yes (Hospitalization)
  Sender: FDA-Public Use
  Company Number: US-BRISTOL-MYERS SQUIBB COMPANY-14761340

PATIENT
  Age: 23 Year
  Sex: Female

DRUGS (2)
  1. KENALOG-40 [Suspect]
     Indication: URTICARIA
     Route: 030
     Dates: start: 20090827
  2. KENALOG-40 [Suspect]
     Indication: ANGIOEDEMA
     Route: 030
     Dates: start: 20090827

REACTIONS (1)
  - ANAPHYLACTIC REACTION [None]
